FAERS Safety Report 8693135 (Version 3)
Quarter: 2014Q3

REPORT INFORMATION
  Report Type: Spontaneous
  Country: US (occurrence: US)
  Receive Date: 20120730
  Receipt Date: 20140729
  Transmission Date: 20150326
  Serious: Yes (Hospitalization, Other)
  Sender: FDA-Public Use
  Company Number: US-ROCHE-1092332

PATIENT
  Sex: Female

DRUGS (1)
  1. XOLAIR [Suspect]
     Active Substance: OMALIZUMAB
     Indication: ASTHMA
     Route: 065

REACTIONS (6)
  - Asthma [Unknown]
  - Exposure during pregnancy [Unknown]
  - Cough [Recovering/Resolving]
  - Dyspnoea [Unknown]
  - Malaise [Unknown]
  - Asthenia [Unknown]
